FAERS Safety Report 4441887-6 (Version None)
Quarter: 2004Q3

REPORT INFORMATION
  Report Type: 
  Country: None (occurrence: None)
  Receive Date: 20040901
  Receipt Date: 20040819
  Transmission Date: 20050211
  Serious: Yes (Other)
  Sender: FDA-Public Use
  Company Number: 2004058455

PATIENT
  Sex: Female

DRUGS (1)
  1. MINOXIDIL [Suspect]
     Dosage: TOPICAL
     Route: 061

REACTIONS (2)
  - ANGIONEUROTIC OEDEMA [None]
  - ECZEMA WEEPING [None]
